FAERS Safety Report 9250540 (Version 1)
Quarter: 2013Q1

REPORT INFORMATION
  Report Type: Spontaneous
  Country: US (occurrence: None)
  Receive Date: 20130305
  Receipt Date: 20130305
  Transmission Date: 20140127
  Serious: Yes (Other)
  Sender: FDA-Public Use
  Company Number: 163-21880-12082338 (0)

PATIENT
  Age: 48 Year
  Sex: Female
  Weight: 71.22 kg

DRUGS (22)
  1. REVLIMID [Suspect]
     Indication: PLASMA CELL LEUKAEMIA
     Route: 048
     Dates: start: 20120817, end: 20120820
  2. ACYCLOVIR [Concomitant]
  3. ALLOPURINOL [Concomitant]
  4. ATIVAN (LORAZEPAM) [Concomitant]
  5. BACTRIM DS (BACTRIM) [Concomitant]
  6. KYTRIL (GRANISETRON) [Concomitant]
  7. LEVAQUIN (LEVOFLOXACIN) [Concomitant]
  8. LUNESTA (ESZOPICLONE) [Concomitant]
  9. ACETAMINOPHEN\HYDROCODONE BITARTRATE [Concomitant]
  10. PROCHLORPERAZINE MALEATE (PROCHLORPERAZINE MALEATE) [Concomitant]
  11. SODIUM CHLORIDE (SODIUM CHLORIDE) [Concomitant]
  12. VELCADE (BORTEZOMIB) [Concomitant]
  13. ZOFRAN (ONDANSETRON HYDROCHLORIDE) [Concomitant]
  14. IBUPROFEN (IBUPROFEN) [Concomitant]
  15. LEXAPRO (ESCITALOPRAM OXALATE) [Concomitant]
  16. TYLENOL (PARACETAMOL) [Concomitant]
  17. DEXAMETHAQSONE (DEXAMETHASONE) [Concomitant]
  18. DEXAMETHASONE SODIUM PHOSPHATE (DEXAMETHASONE SODIUIM PHOSPHATE) [Concomitant]
  19. DOXORUBICIN (DOXORUBICIN) [Concomitant]
  20. CYCLOPHOSPHAMIDE (CYCLOPHOPSHAMIDE) [Concomitant]
  21. ETOPOSIDE (ETOPOSIDE) [Concomitant]
  22. CISPLATIN (CISPLATIN) [Concomitant]

REACTIONS (3)
  - White blood cell count decreased [None]
  - Neutrophil count decreased [None]
  - Rash pruritic [None]
